FAERS Safety Report 25888103 (Version 1)
Quarter: 2025Q4

REPORT INFORMATION
  Report Type: Spontaneous
  Country: JP (occurrence: JP)
  Receive Date: 20251007
  Receipt Date: 20251007
  Transmission Date: 20260118
  Serious: No
  Sender: ABBVIE
  Company Number: JP-ABBVIE-05P-087-0320363-00

PATIENT

DRUGS (13)
  1. SEVOFLURANE [Suspect]
     Active Substance: SEVOFLURANE
     Indication: Maternal exposure timing unspecified
  2. PROPOFOL [Suspect]
     Active Substance: PROPOFOL
     Indication: Maternal exposure timing unspecified
  3. THIAMYLAL SODIUM [Suspect]
     Active Substance: THIAMYLAL SODIUM
     Indication: Maternal exposure timing unspecified
  4. FENTANYL [Suspect]
     Active Substance: FENTANYL
     Indication: Maternal exposure timing unspecified
  5. VECURONIUM BROMIDE [Suspect]
     Active Substance: VECURONIUM BROMIDE
     Indication: Maternal exposure timing unspecified
  6. SUCCINYLCHOLINE CHLORIDE [Suspect]
     Active Substance: SUCCINYLCHOLINE CHLORIDE
     Indication: Maternal exposure timing unspecified
  7. ALPROSTADIL [Suspect]
     Active Substance: ALPROSTADIL
     Indication: Maternal exposure timing unspecified
  8. DILTIAZEM HYDROCHLORIDE [Suspect]
     Active Substance: DILTIAZEM HYDROCHLORIDE
     Indication: Maternal exposure timing unspecified
  9. CEFOTIAM HYDROCHLORIDE [Concomitant]
     Active Substance: CEFOTIAM HYDROCHLORIDE
     Indication: Maternal exposure timing unspecified
     Dates: start: 20050515, end: 20050515
  10. HYDRALAZINE HYDROCHLORIDE [Concomitant]
     Active Substance: HYDRALAZINE HYDROCHLORIDE
     Indication: Maternal exposure timing unspecified
     Dates: start: 20050515, end: 20050515
  11. MANNITOL [Concomitant]
     Active Substance: MANNITOL
     Indication: Maternal exposure timing unspecified
     Dates: start: 20050515, end: 20050515
  12. CARBAZOCHROME SODIUM SULFONATE [Concomitant]
     Active Substance: CARBAZOCHROME SODIUM SULFONATE
     Indication: Maternal exposure timing unspecified
     Dates: start: 20050515, end: 20050515
  13. TRANEXAMIC ACID [Concomitant]
     Active Substance: TRANEXAMIC ACID
     Indication: Maternal exposure timing unspecified
     Dates: start: 20050515, end: 20050515

REACTIONS (2)
  - Foetal exposure during pregnancy [Unknown]
  - Somnolence neonatal [Recovered/Resolved]
